FAERS Safety Report 23576767 (Version 2)
Quarter: 2024Q2

REPORT INFORMATION
  Report Type: Spontaneous
  Country: AT (occurrence: AT)
  Receive Date: 20240228
  Receipt Date: 20240607
  Transmission Date: 20240716
  Serious: Yes (Life-Threatening, Hospitalization, Other)
  Sender: FDA-Public Use
  Company Number: AT-SA-SAC20240226000686

PATIENT
  Age: 38 Year
  Sex: Male
  Weight: 82 kg

DRUGS (3)
  1. DUPIXENT [Suspect]
     Active Substance: DUPILUMAB
     Indication: Chronic rhinosinusitis with nasal polyps
     Dosage: 300 MG
     Route: 058
     Dates: start: 20230712, end: 20230731
  2. MOMETASONE [Concomitant]
     Active Substance: MOMETASONE
  3. PREDNISOLONE [Concomitant]
     Active Substance: PREDNISOLONE

REACTIONS (14)
  - Pericarditis [Recovering/Resolving]
  - Myocarditis [Recovered/Resolved]
  - Erythema nodosum [Unknown]
  - Coronary artery stenosis [Unknown]
  - Cardiomyopathy [Unknown]
  - Eosinophilia [Recovering/Resolving]
  - Swelling [Unknown]
  - Drug intolerance [Unknown]
  - Night sweats [Unknown]
  - Pain in extremity [Unknown]
  - Pain [Unknown]
  - Chest discomfort [Unknown]
  - Peripheral swelling [Unknown]
  - Peripheral venous disease [Unknown]

NARRATIVE: CASE EVENT DATE: 20230101
